FAERS Safety Report 21044110 (Version 4)
Quarter: 2022Q4

REPORT INFORMATION
  Report Type: Report from Study
  Country: CA (occurrence: CA)
  Receive Date: 20220705
  Receipt Date: 20221208
  Transmission Date: 20230113
  Serious: Yes (Hospitalization)
  Sender: FDA-Public Use
  Company Number: CA-JNJFOC-20220538761

PATIENT
  Age: 12 Year
  Sex: Male
  Weight: 38 kg

DRUGS (3)
  1. REMICADE [Suspect]
     Active Substance: INFLIXIMAB
     Indication: Colitis ulcerative
     Dosage: ALSO IN 01-MAY-2022
     Route: 042
     Dates: start: 20220419
  2. REMICADE [Suspect]
     Active Substance: INFLIXIMAB
     Dosage: ON 28-JUN-2022, PATIENT ORDERED REINDUCTION OF 500 MG WEEK 0. 2. AND 6 THEN EVERY 4 WEEKS
     Route: 042
     Dates: start: 2022, end: 20220804
  3. PREDNISONE [Concomitant]
     Active Substance: PREDNISONE
     Indication: Colitis ulcerative
     Route: 048
     Dates: start: 20220505

REACTIONS (3)
  - Colitis ulcerative [Unknown]
  - Treatment failure [Unknown]
  - Off label use [Unknown]

NARRATIVE: CASE EVENT DATE: 20220419
